FAERS Safety Report 4534040-9 (Version None)
Quarter: 2004Q4

REPORT INFORMATION
  Report Type: 
  Country: None (occurrence: None)
  Receive Date: 20041222
  Receipt Date: 20041007
  Transmission Date: 20050328
  Serious: Yes (Death, Life-Threatening, Hospitalization)
  Sender: FDA-Public Use
  Company Number: 200417665US

PATIENT
  Age: 57 Year
  Sex: Female
  Weight: 39 kg

DRUGS (12)
  1. TAXOTERE [Suspect]
     Indication: OVARIAN CANCER
     Route: 042
     Dates: start: 20040924
  2. CARBOPLATIN [Suspect]
     Indication: OVARIAN CANCER
     Dosage: DOSE: AUC 6
     Route: 042
     Dates: start: 20040924
  3. TARCEVA [Suspect]
     Route: 048
     Dates: start: 20041002
  4. DECADRON [Concomitant]
     Dosage: DOSE: WITH CHEMO; UNKNOWN DOSE
  5. IRON [Concomitant]
     Dosage: DOSE: UNK
  6. COLACE [Concomitant]
     Dosage: DOSE: UNK
  7. HYDROCODONE [Concomitant]
     Dosage: DOSE: UNK
  8. ZOFRAN [Concomitant]
     Dosage: DOSE: UNK
  9. COMPAZINE [Concomitant]
     Dosage: DOSE: UNK
  10. ATIVAN [Concomitant]
     Dosage: DOSE: UNK
  11. CELEXA [Concomitant]
     Dosage: DOSE: UNK
  12. PROTONIX [Concomitant]
     Dosage: DOSE: UNK

REACTIONS (32)
  - ABDOMINAL DISTENSION [None]
  - ABDOMINAL TENDERNESS [None]
  - APNOEA [None]
  - ASPIRATION [None]
  - BLOOD PRESSURE DECREASED [None]
  - BLOOD PRESSURE SYSTOLIC INCREASED [None]
  - BODY TEMPERATURE DECREASED [None]
  - BODY TEMPERATURE INCREASED [None]
  - CACHEXIA [None]
  - CLOSTRIDIAL INFECTION [None]
  - CLOSTRIDIUM COLITIS [None]
  - CULTURE URINE POSITIVE [None]
  - DECREASED APPETITE [None]
  - DIARRHOEA [None]
  - DISSEMINATED INTRAVASCULAR COAGULATION [None]
  - DIZZINESS [None]
  - ELECTROCARDIOGRAM QRS COMPLEX PROLONGED [None]
  - GASTROINTESTINAL CARCINOMA [None]
  - HAEMATEMESIS [None]
  - HEART RATE INCREASED [None]
  - METABOLIC ACIDOSIS [None]
  - MULTI-ORGAN FAILURE [None]
  - NAUSEA [None]
  - NEUTROPENIA [None]
  - PALLOR [None]
  - PERITONEAL CARCINOMA [None]
  - PLATELET COUNT DECREASED [None]
  - RESPIRATORY ARREST [None]
  - SEPSIS [None]
  - URINE OUTPUT DECREASED [None]
  - VOMITING [None]
  - WEIGHT DECREASED [None]
